FAERS Safety Report 17136314 (Version 2)
Quarter: 2019Q4

REPORT INFORMATION
  Report Type: Spontaneous
  Country: DE (occurrence: DE)
  Receive Date: 20191210
  Receipt Date: 20191214
  Transmission Date: 20200122
  Serious: Yes (Hospitalization)
  Sender: FDA-Public Use
  Company Number: DE-MYLANLABS-2019M1120237

PATIENT
  Age: 81 Year
  Sex: Female

DRUGS (13)
  1. BUDESONID [Concomitant]
     Active Substance: BUDESONIDE
     Dosage: 3 MG, 1-0-1-0
  2. OPIPRAMOL [Concomitant]
     Active Substance: OPIPRAMOL
     Dosage: 50 MG, 0-0-1-0
  3. METOPROLOL. [Suspect]
     Active Substance: METOPROLOL
     Indication: PRODUCT USED FOR UNKNOWN INDICATION
     Dosage: 77.82 MG, 0.5-0-0.5-0 ODER 1.5-0-0.5
  4. SIMVASTATIN. [Concomitant]
     Active Substance: SIMVASTATIN
     Dosage: 40 MG, 0-0-0.5-0
  5. NITRENDIPIN [Concomitant]
     Active Substance: NITRENDIPINE
     Dosage: 20 MG, 1-0-1-0
  6. TORASEMID [Concomitant]
     Active Substance: TORSEMIDE
     Dosage: 20 MG, 1-0.5-0-0
  7. ENALAPRIL [Concomitant]
     Active Substance: ENALAPRIL
     Dosage: 15.29 MG, 0-0-1-0
  8. ACETYLSALICYLIC ACID [Concomitant]
     Active Substance: ASPIRIN
     Dosage: 100 MG, 0.5-0-0-0
  9. METAMIZOL                          /06276701/ [Concomitant]
     Active Substance: METAMIZOLE
     Dosage: 443.08 MG, BEI BEDARF
  10. RANITIDINE. [Concomitant]
     Active Substance: RANITIDINE
     Dosage: 300 MG, 0-0-1-0
  11. METFORMIN [Concomitant]
     Active Substance: METFORMIN HYDROCHLORIDE
     Dosage: 780 MG, 0.5-0-0.5-0
  12. SAXAGLIPTIN [Concomitant]
     Active Substance: SAXAGLIPTIN
     Dosage: 5 MG, 1-0-0-0
  13. ENALAPRIL/HYDROCHLOROTHIAZID 1A FARMA [Concomitant]
     Dosage: 15.29|6 MG, 1-0-0-0

REACTIONS (2)
  - Tachycardia [Unknown]
  - Hypertension [Unknown]
